FAERS Safety Report 8219316-6 (Version None)
Quarter: 2012Q1

REPORT INFORMATION
  Report Type: 
  Country: None (occurrence: None)
  Receive Date: 20120319
  Receipt Date: 20120313
  Transmission Date: 20120608
  Serious: Yes (Hospitalization)
  Sender: FDA-Public Use
  Company Number: JP-ASTELLAS-2012JP001830

PATIENT
  Age: 16 Year
  Sex: Male
  Weight: 47 kg

DRUGS (10)
  1. PROGRAF [Interacting]
     Dosage: 8 MG, UNKNOWN/D
     Route: 048
     Dates: start: 20110826, end: 20110828
  2. COTRIM [Suspect]
     Indication: INFECTION PROPHYLAXIS
     Dosage: 1 DF, BID
     Route: 048
     Dates: start: 20110817, end: 20110912
  3. PROGRAF [Interacting]
     Dosage: 6 MG, UNKNOWN/D
     Route: 048
     Dates: start: 20110902, end: 20110904
  4. IMURAN [Interacting]
     Indication: COLITIS ULCERATIVE
     Dosage: 50 MG, TID
     Route: 048
     Dates: end: 20111013
  5. PROGRAF [Interacting]
     Indication: COLITIS ULCERATIVE
     Dosage: 7 MG, UNKNOWN/D
     Route: 048
     Dates: start: 20110905, end: 20110912
  6. PROGRAF [Interacting]
     Dosage: 7 MG, UNKNOWN/D
     Route: 048
     Dates: start: 20110829, end: 20110901
  7. FAMOTIDINE [Suspect]
     Dosage: 20 MG, BID
     Route: 048
     Dates: end: 20111013
  8. PREDNISOLONE [Concomitant]
     Indication: COLITIS ULCERATIVE
     Dosage: 5 MG, UID/QD
     Route: 048
     Dates: end: 20111013
  9. PROGRAF [Interacting]
     Dosage: 2.5 MG, BID
     Route: 048
     Dates: start: 20110817, end: 20110825
  10. PENTASA [Suspect]
     Indication: COLITIS ULCERATIVE
     Dosage: 1000 MG, TID
     Route: 048
     Dates: end: 20111013

REACTIONS (2)
  - PANCYTOPENIA [None]
  - DRUG INTERACTION [None]
